FAERS Safety Report 18407387 (Version 5)
Quarter: 2021Q1

REPORT INFORMATION
  Report Type: Spontaneous
  Country: IE (occurrence: IE)
  Receive Date: 20201020
  Receipt Date: 20210305
  Transmission Date: 20210419
  Serious: Yes (Other)
  Sender: FDA-Public Use
  Company Number: IE-MYLANLABS-2020M1088009

PATIENT
  Age: 79 Year
  Sex: Female

DRUGS (8)
  1. ERGOCALCIFEROL. [Suspect]
     Active Substance: ERGOCALCIFEROL
     Indication: VITAMIN D DEFICIENCY
     Dosage: 50000 INTERNATIONAL UNIT, QD (1.25 MG QD)
     Route: 065
     Dates: start: 201606, end: 201608
  2. ERGOCALCIFEROL. [Suspect]
     Active Substance: ERGOCALCIFEROL
     Indication: VITAMIN SUPPLEMENTATION
     Dosage: 1.25 MILLIGRAM, QD
     Route: 065
     Dates: start: 201606, end: 201608
  3. CINACALCET. [Concomitant]
     Active Substance: CINACALCET
     Indication: HYPERPARATHYROIDISM PRIMARY
     Dosage: 30 MILLIGRAM, QD
     Route: 065
     Dates: start: 200705, end: 200912
  4. COLECALCIFEROL [Suspect]
     Active Substance: CHOLECALCIFEROL
     Indication: VITAMIN D DEFICIENCY
     Dosage: 800 INTERNATIONAL UNIT, QD
     Route: 065
     Dates: start: 201410, end: 201608
  5. CINACALCET. [Concomitant]
     Active Substance: CINACALCET
     Dosage: 60 MILLIGRAM, QD
     Dates: start: 201106, end: 201606
  6. CINACALCET. [Concomitant]
     Active Substance: CINACALCET
     Dosage: 60 MILLIGRAM, QD
     Dates: start: 201608, end: 201803
  7. COLECALCIFEROL [Suspect]
     Active Substance: CHOLECALCIFEROL
     Indication: VITAMIN SUPPLEMENTATION
     Dosage: 20 MICROGRAM, QD
     Route: 065
     Dates: start: 201410, end: 201608
  8. CINACALCET. [Concomitant]
     Active Substance: CINACALCET
     Dosage: 30 MILLIGRAM, QD
     Route: 065
     Dates: start: 201410, end: 201603

REACTIONS (8)
  - Chronic kidney disease [Unknown]
  - Hypervitaminosis D [Recovering/Resolving]
  - Hypercalcaemia [Recovered/Resolved]
  - Blood parathyroid hormone increased [Unknown]
  - Overdose [Unknown]
  - Drug ineffective [Unknown]
  - Hypervitaminosis [Recovering/Resolving]
  - Product prescribing error [Recovering/Resolving]

NARRATIVE: CASE EVENT DATE: 200705
